FAERS Safety Report 13060708 (Version 1)
Quarter: 2016Q4

REPORT INFORMATION
  Report Type: Spontaneous
  Country: US (occurrence: US)
  Receive Date: 20161225
  Receipt Date: 20161225
  Transmission Date: 20170207
  Serious: No
  Sender: FDA-Public Use
  Company Number: US-ASTRAZENECA-2016SF31495

PATIENT
  Age: 28549 Day
  Sex: Male
  Weight: 89.4 kg

DRUGS (3)
  1. ENALAPRIL [Concomitant]
     Active Substance: ENALAPRIL
     Route: 065
  2. BRILINTA [Suspect]
     Active Substance: TICAGRELOR
     Indication: MYOCARDIAL INFARCTION
     Route: 048
     Dates: start: 20161107
  3. METOPROLOL TARTRATE. [Suspect]
     Active Substance: METOPROLOL TARTRATE
     Indication: BLOOD PRESSURE NORMAL
     Route: 065
     Dates: start: 200107

REACTIONS (4)
  - Hypoacusis [Unknown]
  - Post procedural haemorrhage [Unknown]
  - Post procedural contusion [Unknown]
  - Procedural pain [Unknown]
